FAERS Safety Report 5412940-5 (Version None)
Quarter: 2007Q3

REPORT INFORMATION
  Report Type: 
  Country: None (occurrence: None)
  Receive Date: 20070813
  Receipt Date: 20070801
  Transmission Date: 20080115
  Serious: Yes (Other)
  Sender: FDA-Public Use
  Company Number: IT-MERCK-0708ITA00003

PATIENT
  Age: 37 Year
  Sex: Male

DRUGS (6)
  1. CRIXIVAN [Suspect]
     Indication: HIV INFECTION
     Route: 065
     Dates: start: 19970101
  2. CRIXIVAN [Suspect]
     Route: 065
     Dates: start: 19960101, end: 19970101
  3. ZIDOVUDINE [Concomitant]
     Indication: HIV INFECTION
     Route: 065
     Dates: start: 19960101, end: 19970101
  4. ZIDOVUDINE [Concomitant]
     Route: 065
     Dates: start: 19970101
  5. ZALCITABINE [Concomitant]
     Indication: HIV INFECTION
     Route: 065
     Dates: start: 19960101, end: 19970101
  6. LAMIVUDINE [Concomitant]
     Indication: HIV INFECTION
     Route: 065
     Dates: start: 19970101

REACTIONS (9)
  - ANAEMIA [None]
  - CANDIDIASIS [None]
  - DYSPEPSIA [None]
  - GASTRIC CANCER [None]
  - GASTRITIS ATROPHIC [None]
  - HELICOBACTER GASTRITIS [None]
  - OROPHARYNGEAL CANDIDIASIS [None]
  - REFLUX OESOPHAGITIS [None]
  - WEIGHT DECREASED [None]
